FAERS Safety Report 19153595 (Version 2)
Quarter: 2022Q3

REPORT INFORMATION
  Report Type: Spontaneous
  Country: PH (occurrence: PH)
  Receive Date: 20210419
  Receipt Date: 20220907
  Transmission Date: 20221027
  Serious: Yes (Hospitalization, Other)
  Sender: FDA-Public Use
  Company Number: PH-INSUD PHARMA-2104PH00394

PATIENT

DRUGS (1)
  1. ALTAVERA [Suspect]
     Active Substance: ETHINYL ESTRADIOL\LEVONORGESTREL
     Indication: Oral contraception
     Dosage: 7-YEAR HISTORY OF CHRONIC INTAKE
     Route: 048

REACTIONS (14)
  - Tolosa-Hunt syndrome [Recovered/Resolved]
  - Granuloma [Recovered/Resolved]
  - Ophthalmoplegia [Recovered/Resolved]
  - VIth nerve paralysis [Recovered/Resolved]
  - Diplopia [Recovered/Resolved]
  - Strabismus [Recovered/Resolved]
  - Eye movement disorder [Recovered/Resolved]
  - Vision blurred [Recovered/Resolved]
  - Lacrimation increased [Recovered/Resolved]
  - Headache [Recovered/Resolved]
  - Retinopathy hypertensive [Recovered/Resolved]
  - Blood pressure increased [Recovered/Resolved]
  - Leukocytosis [Recovered/Resolved]
  - Proteinuria [Recovered/Resolved]
